FAERS Safety Report 14952334 (Version 2)
Quarter: 2018Q2

REPORT INFORMATION
  Report Type: Spontaneous
  Country: US (occurrence: US)
  Receive Date: 20180530
  Receipt Date: 20180622
  Transmission Date: 20180711
  Serious: No
  Sender: FDA-Public Use
  Company Number: US-PFIZER INC-2018215206

PATIENT
  Age: 13 Year
  Sex: Female
  Weight: 70.31 kg

DRUGS (2)
  1. EUCRISA [Suspect]
     Active Substance: CRISABOROLE
     Indication: ECZEMA
     Dosage: TWICE A DAY, AS NEEDED
     Route: 061
     Dates: start: 20180517, end: 20180520
  2. QUILLICHEW ER [Concomitant]
     Active Substance: METHYLPHENIDATE HYDROCHLORIDE
     Indication: ATTENTION DEFICIT/HYPERACTIVITY DISORDER
     Dosage: 5 MG, DAILY (5 MG TABLET DAILY)

REACTIONS (8)
  - Application site exfoliation [Unknown]
  - Condition aggravated [Unknown]
  - Pain [Unknown]
  - Application site erythema [Unknown]
  - Dark circles under eyes [Unknown]
  - Eczema [Unknown]
  - Application site swelling [Unknown]
  - Application site pain [Unknown]

NARRATIVE: CASE EVENT DATE: 20180518
